FAERS Safety Report 13077546 (Version 1)
Quarter: 2016Q4

REPORT INFORMATION
  Report Type: Spontaneous
  Country: US (occurrence: US)
  Receive Date: 20161231
  Receipt Date: 20161231
  Transmission Date: 20170207
  Serious: No
  Sender: FDA-Public Use
  Company Number: US-DRREDDYS-USA/USA/16/0083559

PATIENT
  Sex: Female
  Weight: 73.4 kg

DRUGS (2)
  1. HABITROL [Suspect]
     Active Substance: NICOTINE
     Route: 061
  2. HABITROL [Suspect]
     Active Substance: NICOTINE
     Indication: SMOKING CESSATION THERAPY
     Dosage: 2 YEARS AGO
     Route: 061

REACTIONS (3)
  - Product quality issue [Unknown]
  - Nicotine dependence [Unknown]
  - Incorrect drug administration duration [Unknown]
